FAERS Safety Report 5849367-8 (Version None)
Quarter: 2008Q3

REPORT INFORMATION
  Report Type: 
  Country: None (occurrence: None)
  Receive Date: 20080819
  Receipt Date: 20080229
  Transmission Date: 20090109
  Serious: No
  Sender: FDA-Public Use
  Company Number: US-BAYER-US-2007-042859

PATIENT

DRUGS (1)
  1. BETASERON [Suspect]
     Dosage: AS USED: 6 MIU

REACTIONS (1)
  - LIVER FUNCTION TEST ABNORMAL [None]
